FAERS Safety Report 9737563 (Version 1)
Quarter: 2013Q4

REPORT INFORMATION
  Report Type: Spontaneous
  Country: US (occurrence: US)
  Receive Date: 20131208
  Receipt Date: 20131208
  Transmission Date: 20140711
  Serious: No
  Sender: FDA-Public Use
  Company Number: US-009507513-1312USA002068

PATIENT
  Sex: Female

DRUGS (10)
  1. ASMANEX TWISTHALER [Suspect]
     Indication: ASTHMA
     Dosage: INHALE ONE PUFF BY MOUTH EVERY 24 HOURS IN THE EVENING
     Route: 048
     Dates: start: 2004
  2. PROAIR (ALBUTEROL SULFATE) [Concomitant]
  3. ZOLOFT [Concomitant]
  4. ABILIFY [Concomitant]
  5. CYMBALTA [Concomitant]
  6. MONTELUKAST SODIUM [Concomitant]
  7. TRAZODONE HYDROCHLORIDE [Concomitant]
  8. PROGESTERONE [Concomitant]
     Route: 061
  9. IBUPROFEN [Concomitant]
  10. EPIPEN [Concomitant]

REACTIONS (3)
  - Asthma [Unknown]
  - Drug dose omission [Unknown]
  - Product container issue [Unknown]
